FAERS Safety Report 7625927-9 (Version None)
Quarter: 2011Q3

REPORT INFORMATION
  Report Type: 
  Country: None (occurrence: None)
  Receive Date: 20110721
  Receipt Date: 20110721
  Transmission Date: 20111222
  Serious: No
  Sender: FDA-Public Use
  Company Number: None

PATIENT
  Age: 42 Year
  Sex: Female
  Weight: 85.728 kg

DRUGS (3)
  1. SERTRALINE HYDROCHLORIDE [Interacting]
  2. ZOLOFT [Interacting]
     Indication: POST-TRAUMATIC STRESS DISORDER
  3. SERTRALINE HYDROCHLORIDE [Suspect]
     Indication: ANXIETY
     Dosage: 25MG
     Route: 048
     Dates: start: 20090806, end: 20110719

REACTIONS (4)
  - PALPITATIONS [None]
  - SUICIDAL IDEATION [None]
  - MUSCLE SPASMS [None]
  - FACIAL SPASM [None]
